FAERS Safety Report 13305687 (Version 5)
Quarter: 2019Q4

REPORT INFORMATION
  Report Type: Spontaneous
  Country: US (occurrence: US)
  Receive Date: 20170308
  Receipt Date: 20191030
  Transmission Date: 20200122
  Serious: Yes (Hospitalization)
  Sender: FDA-Public Use
  Company Number: US-PFIZER INC-2017095499

PATIENT
  Age: 74 Year
  Sex: Female
  Weight: 65.76 kg

DRUGS (9)
  1. LYRICA [Suspect]
     Active Substance: PREGABALIN
     Indication: NEURALGIA
  2. MORPHINE [Concomitant]
     Active Substance: MORPHINE
     Dosage: UNK
     Dates: start: 2012
  3. SUBOXONE [Suspect]
     Active Substance: BUPRENORPHINE HYDROCHLORIDE\NALOXONE HYDROCHLORIDE
     Dosage: UNK
  4. MORPHINE [Concomitant]
     Active Substance: MORPHINE
     Dosage: 2.5 DF, DAILY
     Route: 048
  5. LYRICA [Suspect]
     Active Substance: PREGABALIN
     Indication: MUSCULOSKELETAL DISCOMFORT
     Dosage: 200 MG, TWICE DAILY
     Route: 048
  6. LYRICA [Suspect]
     Active Substance: PREGABALIN
     Indication: FIBROMYALGIA
     Dosage: 275 MG, DAILY (200 MG CAPSULE IN THE AFTERNOON AND A 75 MG CAPSULE AT NIGHT)
     Route: 048
  7. MORPHINE [Concomitant]
     Active Substance: MORPHINE
     Indication: PAIN
     Dosage: 30 MG, 3X/DAY
     Route: 048
  8. LYRICA [Suspect]
     Active Substance: PREGABALIN
     Indication: BACK DISORDER
     Dosage: 200 MG, UNK (3X)
     Dates: start: 2011
  9. LYRICA [Suspect]
     Active Substance: PREGABALIN
     Indication: SCIATICA

REACTIONS (7)
  - Intentional product misuse [Unknown]
  - Wrong technique in product usage process [Unknown]
  - Constipation [Recovered/Resolved]
  - Burning sensation [Recovered/Resolved]
  - Drug ineffective [Unknown]
  - Vertebral osteophyte [Recovered/Resolved]
  - Peripheral swelling [Recovered/Resolved]
